FAERS Safety Report 5724940-6 (Version None)
Quarter: 2008Q2

REPORT INFORMATION
  Report Type: 
  Country: None (occurrence: None)
  Receive Date: 20080430
  Receipt Date: 20080430
  Transmission Date: 20081010
  Serious: Yes (Hospitalization)
  Sender: FDA-Public Use
  Company Number: None

PATIENT
  Sex: Female

DRUGS (6)
  1. EXJADE [Suspect]
     Indication: IRON OVERLOAD
     Dosage: 1 TABLET DAILY PO ABOUT 6-8 MONTHS
     Route: 048
  2. LASIX [Concomitant]
  3. JANUVIA [Concomitant]
  4. GLYBURIDE [Concomitant]
  5. LIPITOR [Concomitant]
  6. MEGACE [Concomitant]

REACTIONS (1)
  - THROMBOCYTOPENIA [None]
